FAERS Safety Report 5085577-8 (Version None)
Quarter: 2006Q3

REPORT INFORMATION
  Report Type: 
  Country: None (occurrence: None)
  Receive Date: 20060822
  Receipt Date: 20060818
  Transmission Date: 20061208
  Serious: Yes (Other)
  Sender: FDA-Public Use
  Company Number: US-GLAXOSMITHKLINE-A0617309A

PATIENT
  Age: 41 Year
  Sex: Female

DRUGS (5)
  1. WELLBUTRIN [Suspect]
     Indication: DEPRESSION
     Dosage: 3TAB PER DAY
  2. ZOLOFT [Suspect]
     Indication: DEPRESSION
     Dates: start: 20060708
  3. ACETYLSALICYLIC ACID SRT [Concomitant]
  4. CALCIUM GLUCONATE [Concomitant]
  5. VITAMINS [Concomitant]

REACTIONS (8)
  - CEREBROVASCULAR ACCIDENT [None]
  - DRUG INEFFECTIVE [None]
  - FEELING JITTERY [None]
  - INSOMNIA [None]
  - PREMATURE MENOPAUSE [None]
  - TRANSIENT ISCHAEMIC ATTACK [None]
  - VOMITING [None]
  - WEIGHT DECREASED [None]
